FAERS Safety Report 7380583-2 (Version None)
Quarter: 2011Q1

REPORT INFORMATION
  Report Type: 
  Country: None (occurrence: None)
  Receive Date: 20110329
  Receipt Date: 20110316
  Transmission Date: 20110831
  Serious: Yes (Hospitalization)
  Sender: FDA-Public Use
  Company Number: US-ACTELION-A-US2011-46636

PATIENT

DRUGS (3)
  1. VENTAVIS [Suspect]
     Indication: PULMONARY ARTERIAL HYPERTENSION
     Dosage: UNK ?G, UNK
     Route: 055
     Dates: start: 20100812
  2. REVATIO [Concomitant]
  3. COUMADIN [Concomitant]

REACTIONS (1)
  - MYOCARDIAL INFARCTION [None]
